FAERS Safety Report 16906954 (Version 1)
Quarter: 2019Q4

REPORT INFORMATION
  Report Type: Report from Study
  Country: CA (occurrence: CA)
  Receive Date: 20191011
  Receipt Date: 20191011
  Transmission Date: 20200122
  Serious: Yes (Life-Threatening, Hospitalization)
  Sender: FDA-Public Use
  Company Number: CA-BEH-2019107640

PATIENT
  Age: 14 Year
  Sex: Female

DRUGS (17)
  1. CLONIDINE. [Concomitant]
     Active Substance: CLONIDINE
  2. METOPROLOL. [Concomitant]
     Active Substance: METOPROLOL
  3. HIZENTRA [Suspect]
     Active Substance: HUMAN IMMUNOGLOBULIN G
     Indication: RENAL TRANSPLANT
  4. PREDNISONE. [Concomitant]
     Active Substance: PREDNISONE
  5. MEPRON [Concomitant]
     Active Substance: ATOVAQUONE
  6. HIZENTRA [Suspect]
     Active Substance: HUMAN IMMUNOGLOBULIN G
     Indication: SECONDARY IMMUNODEFICIENCY
     Dosage: 10 GRAM, QOW (BI-MONTHLY)
     Route: 058
     Dates: start: 20160411
  7. HUMAN IMMUNOGLOBULIN (INN) [Suspect]
     Active Substance: HUMAN IMMUNOGLOBULIN G
     Dosage: UNK
     Route: 042
     Dates: start: 201907
  8. MAGNESIUM [Concomitant]
     Active Substance: MAGNESIUM
  9. LANSOPRAZOLE. [Concomitant]
     Active Substance: LANSOPRAZOLE
  10. MANIDIPINE [Concomitant]
     Active Substance: MANIDIPINE
  11. NITROFURANTOIN. [Concomitant]
     Active Substance: NITROFURANTOIN
  12. CORTISONE [Suspect]
     Active Substance: CORTISONE
  13. TACROLIMUS. [Concomitant]
     Active Substance: TACROLIMUS
  14. HIZENTRA [Suspect]
     Active Substance: HUMAN IMMUNOGLOBULIN G
     Indication: IMMUNOSUPPRESSION
  15. CELLCEPT [Concomitant]
     Active Substance: MYCOPHENOLATE MOFETIL\MYCOPHENOLATE MOFETIL HYDROCHLORIDE
  16. IRON [Concomitant]
     Active Substance: IRON
  17. ARANESP [Concomitant]
     Active Substance: DARBEPOETIN ALFA

REACTIONS (4)
  - Pericardial effusion [Recovering/Resolving]
  - Renal failure [Recovering/Resolving]
  - Blood pressure increased [Recovering/Resolving]
  - Gastric haemorrhage [Recovered/Resolved]

NARRATIVE: CASE EVENT DATE: 2019
